FAERS Safety Report 7246114-2 (Version None)
Quarter: 2011Q1

REPORT INFORMATION
  Report Type: 
  Country: None (occurrence: None)
  Receive Date: 20110126
  Receipt Date: 20110119
  Transmission Date: 20110831
  Serious: Yes (Other)
  Sender: FDA-Public Use
  Company Number: A0908683A

PATIENT
  Sex: Female

DRUGS (1)
  1. PAXIL [Suspect]
     Indication: DEPRESSION
     Route: 048
     Dates: start: 19980101

REACTIONS (13)
  - VISUAL IMPAIRMENT [None]
  - DEPRESSION [None]
  - FATIGUE [None]
  - ABDOMINAL DISCOMFORT [None]
  - NAUSEA [None]
  - HEADACHE [None]
  - HEPATIC ENZYME INCREASED [None]
  - HYPERHIDROSIS [None]
  - WEIGHT INCREASED [None]
  - PALPITATIONS [None]
  - DIABETES MELLITUS [None]
  - DISTURBANCE IN ATTENTION [None]
  - BACK PAIN [None]
